FAERS Safety Report 8244812-5 (Version None)
Quarter: 2012Q1

REPORT INFORMATION
  Report Type: 
  Country: None (occurrence: None)
  Receive Date: 20120329
  Receipt Date: 20110503
  Transmission Date: 20120608
  Serious: No
  Sender: FDA-Public Use
  Company Number: US-MYLANLABS-2011S1009284

PATIENT
  Age: 40 Year
  Sex: Female
  Weight: 113.4 kg

DRUGS (2)
  1. FENTANYL-100 [Suspect]
     Indication: BACK PAIN
     Dosage: CHANGES Q. 72 HOURS.
     Route: 062
     Dates: start: 20090801
  2. PERCOCET [Concomitant]
     Indication: BREAKTHROUGH PAIN

REACTIONS (5)
  - DRUG INEFFECTIVE [None]
  - TREMOR [None]
  - RESTLESSNESS [None]
  - DRUG WITHDRAWAL SYNDROME [None]
  - BACK PAIN [None]
